FAERS Safety Report 9103328 (Version 1)
Quarter: 2013Q1

REPORT INFORMATION
  Report Type: Spontaneous
  Country: US (occurrence: US)
  Receive Date: 20130219
  Receipt Date: 20130219
  Transmission Date: 20140127
  Serious: Yes (Hospitalization)
  Sender: FDA-Public Use
  Company Number: US-GLAXOSMITHKLINE-A0718141A

PATIENT
  Age: 57 Year
  Sex: Female
  Weight: 134.1 kg

DRUGS (11)
  1. AVANDIA [Suspect]
     Indication: TYPE 2 DIABETES MELLITUS
     Dosage: 8MG PER DAY
     Route: 048
     Dates: start: 20020326, end: 20070705
  2. CARISOPRODOL [Concomitant]
  3. METOLAZONE [Concomitant]
  4. ZOLPIDEM [Concomitant]
  5. ZOLOFT [Concomitant]
  6. PROMETHAZINE [Concomitant]
  7. PRILOSEC [Concomitant]
  8. GABAPENTIN [Concomitant]
  9. HYDROCODONE [Concomitant]
  10. ATENOLOL [Concomitant]
     Dates: start: 2000
  11. HCTZ [Concomitant]
     Dates: start: 2000

REACTIONS (4)
  - Cardiac failure congestive [Not Recovered/Not Resolved]
  - Pericardial effusion [Unknown]
  - Heart injury [Unknown]
  - Pleural effusion [Unknown]
